FAERS Safety Report 4291353-6 (Version None)
Quarter: 2004Q1

REPORT INFORMATION
  Report Type: 
  Country: None (occurrence: None)
  Receive Date: 20040206
  Receipt Date: 20040206
  Transmission Date: 20041129
  Serious: No
  Sender: FDA-Public Use
  Company Number: None

PATIENT
  Sex: Male
  Weight: 88.905 kg

DRUGS (11)
  1. FLUOROURACIL [Suspect]
     Indication: CARCINOMA
     Dosage: 260 MG/M2/DAY IV CONTINUE {C1D1}
     Route: 042
     Dates: start: 20030910
  2. IRINOTECAN [Suspect]
     Dosage: 65 MG/M2 IV BOLUS (SEE IMAGE) {C1D1}
     Route: 040
     Dates: start: 20030910
  3. CISPLATIN [Suspect]
     Indication: CARCINOMA
     Dosage: 25 MG/M2 IV BOLUS DAYS 1 AND 8
     Route: 040
     Dates: start: 20030710
  4. AMBIEN [Concomitant]
  5. ATENOLOL [Concomitant]
  6. COMPAZINE [Concomitant]
  7. COUMADIN [Concomitant]
  8. IBUPROFEN [Concomitant]
  9. OXYCODONE HCL [Concomitant]
  10. VITAMIN B6 [Concomitant]
  11. ZOFRAN [Concomitant]

REACTIONS (2)
  - ARTHRALGIA [None]
  - PROTHROMBIN TIME PROLONGED [None]
